FAERS Safety Report 8613485 (Version 5)
Quarter: 2014Q2

REPORT INFORMATION
  Report Type: Spontaneous
  Country: US (occurrence: US)
  Receive Date: 20120614
  Receipt Date: 20140523
  Transmission Date: 20141212
  Serious: Yes (Hospitalization, Other)
  Sender: FDA-Public Use
  Company Number: US-ASTRAZENECA-2012SE36135

PATIENT
  Age: 49 Year
  Sex: Female
  Weight: 61.2 kg

DRUGS (49)
  1. NEXIUM [Suspect]
     Indication: GASTROOESOPHAGEAL REFLUX DISEASE
     Route: 048
  2. NEXIUM [Suspect]
     Indication: GASTROOESOPHAGEAL REFLUX DISEASE
     Route: 048
     Dates: start: 2004, end: 2013
  3. NEXIUM [Suspect]
     Indication: GASTROOESOPHAGEAL REFLUX DISEASE
     Route: 048
     Dates: start: 20070702
  4. NEXIUM [Suspect]
     Indication: GASTROOESOPHAGEAL REFLUX DISEASE
     Route: 048
     Dates: start: 20080204
  5. PREVACID [Concomitant]
     Dates: start: 2003, end: 2004
  6. ZANTAC [Concomitant]
     Dates: start: 2004, end: 2013
  7. ZANTAC [Concomitant]
     Dates: start: 20080305
  8. TUMS [Concomitant]
     Dosage: 2 DAILY
     Dates: start: 2003, end: 2013
  9. NORCO [Concomitant]
     Indication: PAIN
     Dosage: 5-500 MG
  10. SOMA [Concomitant]
     Indication: MUSCLE SPASMS
     Dates: start: 20080125
  11. VERAPAMIL [Concomitant]
     Indication: BLOOD PRESSURE
     Dates: start: 20100115
  12. VERAPAMIL [Concomitant]
     Indication: PALPITATIONS
     Dates: start: 20100115
  13. AGGRENOX [Concomitant]
     Indication: MIGRAINE
     Route: 048
  14. PROZAC [Concomitant]
     Indication: DEPRESSION
     Dates: start: 20130218
  15. ANTIVERT [Concomitant]
     Indication: DIZZINESS
  16. VITAMIN D [Concomitant]
     Indication: BONE DISORDER
  17. LIPITOR [Concomitant]
     Dates: start: 20121217
  18. CLONAZEPAM [Concomitant]
     Indication: NERVOUSNESS
  19. PROMETHAZINE [Concomitant]
     Indication: GASTRIC DISORDER
     Dates: start: 20080204
  20. CYMBALTA [Concomitant]
     Dates: start: 20080617
  21. NITROGLYCERIN [Concomitant]
     Dates: start: 20090604
  22. PROPO N [Concomitant]
     Dosage: 100-650 MG
  23. LYRICA [Concomitant]
     Dates: start: 20080517
  24. ZEGERID [Concomitant]
     Dosage: 40-1100 MG
     Dates: start: 20080517
  25. PYRIDOSTIGM [Concomitant]
     Dates: start: 20080617
  26. FAMOTIDINE [Concomitant]
     Dates: start: 20081104
  27. TOPIRAMATE [Concomitant]
     Dates: start: 20090410
  28. PLAVIX [Concomitant]
     Dates: start: 20090410
  29. VYOTORIN [Concomitant]
     Dosage: 10-40 MG
     Dates: start: 20081104
  30. TRAMADOL [Concomitant]
     Dates: start: 20090615
  31. AMITRIPTYLIN [Concomitant]
     Dates: start: 20100115
  32. DICLOFENAC [Concomitant]
     Dates: start: 20100115
  33. ISOMETH/ACETAMIN [Concomitant]
     Dates: start: 20100319
  34. BUTALB/ACETAMIN [Concomitant]
     Dosage: 50-325 MG
     Dates: start: 20100413
  35. MECLIZINE [Concomitant]
     Dates: start: 20100617
  36. PAK [Concomitant]
  37. AMITIZA [Concomitant]
     Dates: start: 20130225
  38. FLUOXETINE [Concomitant]
     Dates: start: 20130225
  39. GABAPENTIN [Concomitant]
     Dates: start: 20110411
  40. ALPRAZOLAM [Concomitant]
     Dates: start: 20110310
  41. BENZONATATE [Concomitant]
     Dates: start: 20111018
  42. BUPROPION [Concomitant]
     Dates: start: 20111231
  43. XANAX [Concomitant]
  44. HYDROXYZINE [Concomitant]
  45. IOPHEN C NR [Concomitant]
  46. BETAMETHASONE VALERATE [Concomitant]
  47. OXYCODON/ACETAMINOPHE [Concomitant]
     Dosage: 5-500 MG
     Dates: start: 20080125
  48. FUROSEMIDE [Concomitant]
     Dates: start: 20080402
  49. CARISOPRODOL [Concomitant]
     Dates: start: 20080407

REACTIONS (10)
  - Cellulitis [Unknown]
  - Pneumonia [Unknown]
  - Transient ischaemic attack [Unknown]
  - Osteoporosis [Unknown]
  - Multiple fractures [Unknown]
  - Angina pectoris [Unknown]
  - Chronic obstructive pulmonary disease [Unknown]
  - Vitamin D deficiency [Unknown]
  - Bronchitis [Unknown]
  - Rib fracture [Unknown]
